FAERS Safety Report 18676490 (Version 1)
Quarter: 2020Q4

REPORT INFORMATION
  Report Type: Spontaneous
  Country: US (occurrence: US)
  Receive Date: 20201229
  Receipt Date: 20201229
  Transmission Date: 20210114
  Serious: Yes (Hospitalization)
  Sender: FDA-Public Use
  Company Number: None

PATIENT
  Age: 52 Year
  Sex: Female
  Weight: 173 kg

DRUGS (1)
  1. CASIRIVIMAB 1,200 MG, IMDEVIMAB 1,200 MG IN SODIUM CHLORIDE 0.9 % 250 [Suspect]
     Active Substance: CASIRIVIMAB\IMDEVIMAB
     Indication: COVID-19
     Dosage: ?          OTHER FREQUENCY:ONCE;?
     Route: 041
     Dates: start: 20201216

REACTIONS (7)
  - Asthenia [None]
  - Peripheral swelling [None]
  - Multiple sclerosis relapse [None]
  - Blood pressure diastolic increased [None]
  - Muscle spasms [None]
  - Pain in extremity [None]
  - Skin discolouration [None]

NARRATIVE: CASE EVENT DATE: 20201216
